FAERS Safety Report 17542719 (Version 3)
Quarter: 2020Q2

REPORT INFORMATION
  Report Type: Spontaneous
  Country: US (occurrence: US)
  Receive Date: 20200315
  Receipt Date: 20200416
  Transmission Date: 20200713
  Serious: Yes (Other)
  Sender: FDA-Public Use
  Company Number: NVSC2020US069652

PATIENT
  Age: 77 Year
  Sex: Female
  Weight: 78.91 kg

DRUGS (2)
  1. BEOVU [Suspect]
     Active Substance: BROLUCIZUMAB-DBLL
     Indication: NEOVASCULAR AGE-RELATED MACULAR DEGENERATION
     Dosage: 6 MG
     Route: 031
     Dates: start: 20191116
  2. BEOVU [Suspect]
     Active Substance: BROLUCIZUMAB-DBLL
     Dosage: 6 MG
     Route: 031
     Dates: start: 20200107

REACTIONS (5)
  - Vitritis [Recovered/Resolved]
  - Vitreous floaters [Unknown]
  - Uveitis [Not Recovered/Not Resolved]
  - Eye inflammation [Not Recovered/Not Resolved]
  - Pain [Not Recovered/Not Resolved]

NARRATIVE: CASE EVENT DATE: 20200204
